FAERS Safety Report 21371557 (Version 4)
Quarter: 2022Q4

REPORT INFORMATION
  Report Type: Report from Study
  Country: CA (occurrence: CA)
  Receive Date: 20220923
  Receipt Date: 20221206
  Transmission Date: 20230113
  Serious: Yes (Hospitalization)
  Sender: FDA-Public Use
  Company Number: CA-BAUSCH-BL-2019-064523

PATIENT
  Age: 49 Year
  Sex: Male

DRUGS (36)
  1. PANTOPRAZOLE [Concomitant]
     Active Substance: PANTOPRAZOLE
     Indication: Product used for unknown indication
  2. METHOTREXATE [Concomitant]
     Active Substance: METHOTREXATE
     Indication: Product used for unknown indication
     Dosage: WEANING
  3. TACLONEX [Suspect]
     Active Substance: BETAMETHASONE DIPROPIONATE\CALCIPOTRIENE\CALCIPOTRIENE HYDRATE
     Indication: Product used for unknown indication
  4. SILIQ [Suspect]
     Active Substance: BRODALUMAB
     Indication: Psoriasis
     Dosage: 210 MG/1.5 ML, FOR WEEKS 0,1,2
     Route: 058
     Dates: start: 20191128, end: 201912
  5. SILIQ [Suspect]
     Active Substance: BRODALUMAB
     Indication: Psoriasis
     Dosage: 210 MG/1.5 ML, FOR WEEKS 0,1,2
     Route: 058
     Dates: start: 20191128, end: 201912
  6. SILIQ [Suspect]
     Active Substance: BRODALUMAB
     Indication: Psoriasis
     Dosage: 210 MG/1.5 ML, FOR WEEKS 0,1,2
     Route: 058
     Dates: start: 20191128, end: 201912
  7. SILIQ [Suspect]
     Active Substance: BRODALUMAB
     Indication: Psoriasis
     Dosage: 210 MG/1.5 ML, FOR WEEKS 0,1,2
     Route: 058
     Dates: start: 20191128, end: 201912
  8. SILIQ [Suspect]
     Active Substance: BRODALUMAB
     Indication: Psoriasis
     Dosage: 210 MG/1.5 ML, FOR WEEKS 0,1,2
     Route: 058
     Dates: start: 20191128, end: 201912
  9. SILIQ [Suspect]
     Active Substance: BRODALUMAB
     Indication: Psoriasis
     Dosage: 210 MG/1.5 ML, FOR WEEKS 0,1,2
     Route: 058
     Dates: start: 20191128, end: 201912
  10. SILIQ [Suspect]
     Active Substance: BRODALUMAB
     Indication: Psoriasis
     Dosage: 210 MG/1.5 ML, FOR WEEKS 0,1,2
     Route: 058
     Dates: start: 20191128, end: 201912
  11. SILIQ [Suspect]
     Active Substance: BRODALUMAB
     Indication: Psoriasis
     Dosage: 210 MG/1.5 ML, FOR WEEKS 0,1,2
     Route: 058
     Dates: start: 20191128, end: 201912
  12. SILIQ [Suspect]
     Active Substance: BRODALUMAB
     Indication: Psoriasis
     Dosage: 210 MG/1.5 ML
     Route: 058
  13. SILIQ [Suspect]
     Active Substance: BRODALUMAB
     Indication: Psoriasis
     Dosage: 210 MG/1.5 ML
     Route: 058
  14. SILIQ [Suspect]
     Active Substance: BRODALUMAB
     Indication: Psoriasis
     Dosage: 210 MG/1.5 ML
     Route: 058
  15. SILIQ [Suspect]
     Active Substance: BRODALUMAB
     Indication: Psoriasis
     Dosage: 210 MG/1.5 ML
     Route: 058
  16. SILIQ [Suspect]
     Active Substance: BRODALUMAB
     Indication: Psoriasis
     Dosage: 210 MG/1.5 ML
     Route: 058
  17. SILIQ [Suspect]
     Active Substance: BRODALUMAB
     Indication: Psoriasis
     Dosage: 210 MG/1.5 ML
     Route: 058
  18. SILIQ [Suspect]
     Active Substance: BRODALUMAB
     Indication: Psoriasis
     Dosage: 210 MG/1.5 ML
     Route: 058
  19. SILIQ [Suspect]
     Active Substance: BRODALUMAB
     Indication: Psoriasis
     Dosage: 210 MG/1.5 ML
     Route: 058
  20. SILIQ [Suspect]
     Active Substance: BRODALUMAB
     Indication: Psoriasis
     Dosage: 210 MG/1.5 ML, EVERY 2 WEEKS
     Route: 058
     Dates: start: 2021
  21. SILIQ [Suspect]
     Active Substance: BRODALUMAB
     Indication: Psoriasis
     Dosage: 210 MG/1.5 ML, EVERY 2 WEEKS
     Route: 058
     Dates: start: 2021
  22. SILIQ [Suspect]
     Active Substance: BRODALUMAB
     Indication: Psoriasis
     Dosage: 210 MG/1.5 ML, EVERY 2 WEEKS
     Route: 058
     Dates: start: 2021
  23. SILIQ [Suspect]
     Active Substance: BRODALUMAB
     Indication: Psoriasis
     Dosage: 210 MG/1.5 ML, EVERY 2 WEEKS
     Route: 058
     Dates: start: 2021
  24. SILIQ [Suspect]
     Active Substance: BRODALUMAB
     Indication: Psoriasis
     Dosage: 210 MG/1.5 ML, EVERY 2 WEEKS
     Route: 058
     Dates: start: 2021
  25. SILIQ [Suspect]
     Active Substance: BRODALUMAB
     Indication: Psoriasis
     Dosage: 210 MG/1.5 ML, EVERY 2 WEEKS
     Route: 058
     Dates: start: 2021
  26. SILIQ [Suspect]
     Active Substance: BRODALUMAB
     Indication: Psoriasis
     Dosage: 210 MG/1.5 ML, EVERY 2 WEEKS
     Route: 058
     Dates: start: 2021
  27. SILIQ [Suspect]
     Active Substance: BRODALUMAB
     Indication: Psoriasis
     Dosage: 210 MG/1.5 ML, EVERY 2 WEEKS
     Route: 058
     Dates: start: 2021
  28. SILIQ [Suspect]
     Active Substance: BRODALUMAB
     Indication: Psoriasis
     Dosage: 210 MG/1.5 ML, EVERY 2 WEEKS, ON HOLD
     Route: 058
     Dates: start: 2022
  29. SILIQ [Suspect]
     Active Substance: BRODALUMAB
     Indication: Psoriasis
     Dosage: 210 MG/1.5 ML, EVERY 2 WEEKS, ON HOLD
     Route: 058
     Dates: start: 2022
  30. SILIQ [Suspect]
     Active Substance: BRODALUMAB
     Indication: Psoriasis
     Dosage: 210 MG/1.5 ML, EVERY 2 WEEKS, ON HOLD
     Route: 058
     Dates: start: 2022
  31. SILIQ [Suspect]
     Active Substance: BRODALUMAB
     Indication: Psoriasis
     Dosage: 210 MG/1.5 ML, EVERY 2 WEEKS, ON HOLD
     Route: 058
     Dates: start: 2022
  32. SILIQ [Suspect]
     Active Substance: BRODALUMAB
     Indication: Psoriasis
     Dosage: 210 MG/1.5 ML, EVERY 2 WEEKS, ON HOLD
     Route: 058
     Dates: start: 2022
  33. SILIQ [Suspect]
     Active Substance: BRODALUMAB
     Indication: Psoriasis
     Dosage: 210 MG/1.5 ML, EVERY 2 WEEKS, ON HOLD
     Route: 058
     Dates: start: 2022
  34. SILIQ [Suspect]
     Active Substance: BRODALUMAB
     Indication: Psoriasis
     Dosage: 210 MG/1.5 ML, EVERY 2 WEEKS, ON HOLD
     Route: 058
     Dates: start: 2022
  35. SILIQ [Suspect]
     Active Substance: BRODALUMAB
     Indication: Psoriasis
     Dosage: 210 MG/1.5 ML, EVERY 2 WEEKS, ON HOLD
     Route: 058
     Dates: start: 2022
  36. PANTOPRAZOLE SODIUM [Concomitant]
     Active Substance: PANTOPRAZOLE SODIUM
     Indication: Product used for unknown indication

REACTIONS (12)
  - Skin atrophy [Unknown]
  - Skin abrasion [Recovered/Resolved]
  - Injection site mass [Unknown]
  - Illness [Unknown]
  - Skin atrophy [Unknown]
  - Therapy interrupted [Unknown]
  - Skin abrasion [Recovered/Resolved]
  - Arthralgia [Recovered/Resolved]
  - Intentional product use issue [Unknown]
  - Psoriasis [Recovering/Resolving]
  - Therapeutic response unexpected [Unknown]
  - Patient dissatisfaction with treatment [Unknown]
